FAERS Safety Report 7684668-2 (Version None)
Quarter: 2011Q3

REPORT INFORMATION
  Report Type: 
  Country: None (occurrence: None)
  Receive Date: 20110805
  Receipt Date: 20110802
  Transmission Date: 20111222
  Serious: Yes (Other)
  Sender: FDA-Public Use
  Company Number: 2011029415

PATIENT
  Age: 68 Year
  Sex: Female
  Weight: 67.586 kg

DRUGS (12)
  1. ZEMAIRA [Suspect]
     Indication: ALPHA-1 ANTI-TRYPSIN DEFICIENCY
     Dosage: 60 MG/KG 1X/WEEK, 1022 MG 20 ML VIAL;0.08 ML/KG/MIN (5.5 ML/MIN) INTRAVENOUS
     Route: 042
     Dates: start: 20101122
  2. ZEMAIRA [Suspect]
     Indication: EMPHYSEMA
     Dosage: 60 MG/KG 1X/WEEK, 1022 MG 20 ML VIAL;0.08 ML/KG/MIN (5.5 ML/MIN) INTRAVENOUS
     Route: 042
     Dates: start: 20101122
  3. LYRICA [Concomitant]
  4. PRAVASTATIN [Concomitant]
  5. ADVAIR HFA [Concomitant]
  6. ZYRTEC [Concomitant]
  7. CALAN [Concomitant]
  8. AVAPRO [Concomitant]
  9. MAXZIDE [Concomitant]
  10. OPHENADRINE (ORPHENADRINE) [Concomitant]
  11. XANAX [Concomitant]
  12. ALBUTEROL [Concomitant]

REACTIONS (1)
  - LOWER RESPIRATORY TRACT INFECTION [None]
